FAERS Safety Report 24878702 (Version 1)
Quarter: 2025Q1

REPORT INFORMATION
  Report Type: Spontaneous
  Country: US (occurrence: None)
  Receive Date: 20250122
  Receipt Date: 20250122
  Transmission Date: 20250408
  Serious: Yes (Hospitalization)
  Sender: FDA-CTU
  Company Number: None

PATIENT
  Age: 82 Year
  Sex: Male

DRUGS (1)
  1. SEMAGLUTIDE [Suspect]
     Active Substance: SEMAGLUTIDE
     Indication: Diabetes mellitus
     Route: 058
     Dates: end: 20241120

REACTIONS (4)
  - Pancreatic mass [None]
  - Abdominal pain [None]
  - Jaundice [None]
  - Vomiting [None]

NARRATIVE: CASE EVENT DATE: 20241123
